FAERS Safety Report 16304213 (Version 1)
Quarter: 2019Q2

REPORT INFORMATION
  Report Type: Spontaneous
  Country: US (occurrence: US)
  Receive Date: 20190513
  Receipt Date: 20190513
  Transmission Date: 20190711
  Serious: No
  Sender: FDA-Public Use
  Company Number: US-MERZ NORTH AMERICA, INC.-19MRZ-00214

PATIENT
  Sex: Female

DRUGS (1)
  1. ASCLERA [Suspect]
     Active Substance: POLIDOCANOL
     Indication: SCLEROTHERAPY
     Dosage: UNKNOWN

REACTIONS (3)
  - Bone pain [Recovering/Resolving]
  - Urticaria [Recovering/Resolving]
  - Pruritus [Recovering/Resolving]
